FAERS Safety Report 7036746-9 (Version None)
Quarter: 2010Q4

REPORT INFORMATION
  Report Type: 
  Country: None (occurrence: None)
  Receive Date: 20101011
  Receipt Date: 20100929
  Transmission Date: 20110411
  Serious: No
  Sender: FDA-Public Use
  Company Number: 2009BI033546

PATIENT
  Sex: Female

DRUGS (6)
  1. TYSABRI [Suspect]
     Indication: MULTIPLE SCLEROSIS
     Route: 042
     Dates: start: 20090810, end: 20090908
  2. BENADRYL [Concomitant]
     Indication: PHARYNGEAL OEDEMA
     Route: 042
  3. BENADRYL [Concomitant]
     Indication: FLUSHING
     Route: 042
  4. BENADRYL [Concomitant]
     Indication: URTICARIA
     Route: 042
  5. BENADRYL [Concomitant]
     Indication: PRURITUS
     Route: 042
  6. BENADRYL [Concomitant]
     Route: 042

REACTIONS (5)
  - FLUSHING [None]
  - PAIN [None]
  - PHARYNGEAL OEDEMA [None]
  - PRURITUS [None]
  - URTICARIA [None]
